FAERS Safety Report 10344306 (Version 1)
Quarter: 2014Q3

REPORT INFORMATION
  Report Type: Report from Study
  Country: US (occurrence: US)
  Receive Date: 20140728
  Receipt Date: 20140728
  Transmission Date: 20150326
  Serious: Yes (Hospitalization)
  Sender: FDA-Public Use
  Company Number: US-BIOGENIDEC-2014BI073293

PATIENT
  Sex: Female

DRUGS (1)
  1. AVONEX [Suspect]
     Active Substance: INTERFERON BETA-1A
     Indication: MULTIPLE SCLEROSIS
     Route: 030

REACTIONS (6)
  - Influenza [Recovered/Resolved]
  - Hypoaesthesia [Unknown]
  - Central nervous system lesion [Unknown]
  - Liver function test abnormal [Unknown]
  - Cholecystectomy [Recovered/Resolved]
  - Pyrexia [Recovered/Resolved]
